FAERS Safety Report 4494361-5 (Version None)
Quarter: 2004Q4

REPORT INFORMATION
  Report Type: 
  Country: None (occurrence: None)
  Receive Date: 20041102
  Receipt Date: 20041012
  Transmission Date: 20050328
  Serious: Yes (Hospitalization, Other)
  Sender: FDA-Public Use
  Company Number: EWC041040948

PATIENT
  Age: 65 Year
  Sex: Female

DRUGS (4)
  1. ZYPREXA [Suspect]
     Indication: BIPOLAR DISORDER
     Dosage: 20 MG DAY
     Dates: start: 20030301, end: 20040924
  2. ZYPREXA [Suspect]
     Indication: SCHIZOAFFECTIVE DISORDER
     Dosage: 20 MG DAY
     Dates: start: 20030301, end: 20040924
  3. LORAZEPAM [Concomitant]
  4. CLOTIAPINE [Concomitant]

REACTIONS (11)
  - BONE DISORDER [None]
  - BONE PAIN [None]
  - FEMUR FRACTURE [None]
  - HYPERHIDROSIS [None]
  - LEUKOCYTOSIS [None]
  - MUCOSAL DRYNESS [None]
  - MUSCULOSKELETAL DISORDER [None]
  - NEUROLEPTIC MALIGNANT SYNDROME [None]
  - PYREXIA [None]
  - RHABDOMYOLYSIS [None]
  - TREMOR [None]
